FAERS Safety Report 8239389-4 (Version None)
Quarter: 2012Q1

REPORT INFORMATION
  Report Type: 
  Country: None (occurrence: None)
  Receive Date: 20120326
  Receipt Date: 20120316
  Transmission Date: 20120608
  Serious: Yes (Hospitalization)
  Sender: FDA-Public Use
  Company Number: 128915-2

PATIENT
  Age: 39 Year
  Sex: Female

DRUGS (1)
  1. ETOPOSIDE [Suspect]
     Indication: NON-SMALL CELL LUNG CANCER STAGE III
     Dosage: 72MG, ON DAYS ONE TO FIVE
     Dates: start: 20100920, end: 20101025

REACTIONS (4)
  - BRAIN OEDEMA [None]
  - OESOPHAGITIS [None]
  - SUPERIOR VENA CAVA SYNDROME [None]
  - VOMITING [None]
